FAERS Safety Report 10475943 (Version 1)
Quarter: 2014Q3

REPORT INFORMATION
  Report Type: Spontaneous
  Country: US (occurrence: US)
  Receive Date: 20140925
  Receipt Date: 20140925
  Transmission Date: 20150326
  Serious: No
  Sender: FDA-Public Use
  Company Number: US-GLAXOSMITHKLINE-A1057262A

PATIENT
  Sex: Female

DRUGS (8)
  1. RELPAX [Concomitant]
     Active Substance: ELETRIPTAN HYDROBROMIDE
  2. ALPRAZOLAM. [Concomitant]
     Active Substance: ALPRAZOLAM
  3. RESTASIS [Concomitant]
     Active Substance: CYCLOSPORINE
  4. ACETAMINOPHEN + CODEINE #3 [Concomitant]
  5. PROAIR HFA [Suspect]
     Active Substance: ALBUTEROL SULFATE
     Dosage: 2PUFF SIX TIMES PER DAY
  6. SEREVENT [Suspect]
     Active Substance: SALMETEROL XINAFOATE
     Indication: ASTHMA
     Route: 055
     Dates: start: 20131101
  7. TRAVOPROST [Concomitant]
     Active Substance: TRAVOPROST
  8. GLUTAMIC ACID [Concomitant]
     Active Substance: GLUTAMIC ACID

REACTIONS (14)
  - Tremor [Unknown]
  - Product quality issue [Unknown]
  - Energy increased [Unknown]
  - Wheezing [Unknown]
  - Asthenia [Unknown]
  - Urticaria [Unknown]
  - Dyspnoea [Unknown]
  - Hypertension [Unknown]
  - Palpitations [Unknown]
  - Dizziness [Unknown]
  - Nausea [Unknown]
  - Malaise [Unknown]
  - Heart rate increased [Not Recovered/Not Resolved]
  - Drug ineffective [Unknown]
